FAERS Safety Report 9100728 (Version 1)
Quarter: 2013Q1

REPORT INFORMATION
  Report Type: Spontaneous
  Country: US (occurrence: US)
  Receive Date: 20130215
  Receipt Date: 20130215
  Transmission Date: 20140127
  Serious: Yes (Other)
  Sender: FDA-Public Use
  Company Number: US-PFIZER INC-2013055510

PATIENT
  Age: 21 Year
  Sex: Female
  Weight: 65.8 kg

DRUGS (1)
  1. CHAPSTICK MEDICATED [Suspect]
     Indication: CHAPPED LIPS
     Dosage: UNK
     Dates: start: 20130206, end: 20130208

REACTIONS (3)
  - Oral bacterial infection [Not Recovered/Not Resolved]
  - Lip disorder [Not Recovered/Not Resolved]
  - Application site swelling [Not Recovered/Not Resolved]
